FAERS Safety Report 12644517 (Version 1)
Quarter: 2016Q3

REPORT INFORMATION
  Report Type: Spontaneous
  Country: US (occurrence: US)
  Receive Date: 20160811
  Receipt Date: 20160811
  Transmission Date: 20161109
  Serious: No
  Sender: FDA-Public Use
  Company Number: US-TARO-2016TAR00230

PATIENT
  Sex: Female

DRUGS (1)
  1. CLOBETASOL PROPIONATE OINTMENT USP 0.05% [Suspect]
     Active Substance: CLOBETASOL PROPIONATE

REACTIONS (2)
  - Application site hypoaesthesia [Unknown]
  - Accidental exposure to product [Recovered/Resolved]
